FAERS Safety Report 7356500-8 (Version None)
Quarter: 2011Q1

REPORT INFORMATION
  Report Type: 
  Country: None (occurrence: None)
  Receive Date: 20110316
  Receipt Date: 20110310
  Transmission Date: 20110831
  Serious: Yes (Hospitalization, Other)
  Sender: FDA-Public Use
  Company Number: DE-ABBOTT-11P-062-0709727-00

PATIENT
  Sex: Male
  Weight: 65.5 kg

DRUGS (5)
  1. ENANTONE MONATSDEPOT [Suspect]
     Dates: start: 20080701
  2. EUTHYROX [Concomitant]
     Route: 048
     Dates: start: 20080111
  3. EUTHYROX [Concomitant]
     Route: 048
     Dates: start: 20070830, end: 20080110
  4. ENANTONE MONATSDEPOT [Suspect]
     Indication: PRECOCIOUS PUBERTY
     Route: 058
     Dates: start: 20080301, end: 20080601
  5. EUTHYROX [Concomitant]
     Indication: PRODUCT USED FOR UNKNOWN INDICATION
     Route: 048
     Dates: start: 20070501, end: 20070829

REACTIONS (8)
  - PYREXIA [None]
  - LUMBAR VERTEBRAL FRACTURE [None]
  - DIZZINESS [None]
  - HEADACHE [None]
  - BONE PAIN [None]
  - INJECTION SITE INDURATION [None]
  - OSTEOPOROSIS [None]
  - THORACIC VERTEBRAL FRACTURE [None]
